FAERS Safety Report 4905045-0 (Version None)
Quarter: 2006Q1

REPORT INFORMATION
  Report Type: 
  Country: None (occurrence: None)
  Receive Date: 20060208
  Receipt Date: 20051108
  Transmission Date: 20060701
  Serious: No
  Sender: FDA-Public Use
  Company Number: US-GLAXOSMITHKLINE-A0581419A

PATIENT
  Age: 43 Year
  Sex: Male

DRUGS (3)
  1. PAXIL [Suspect]
     Indication: DRUG USE FOR UNKNOWN INDICATION
     Dosage: 40MG PER DAY
     Route: 048
     Dates: start: 20051009
  2. DEPAKOTE [Concomitant]
  3. NEURONTIN [Concomitant]

REACTIONS (3)
  - DYSARTHRIA [None]
  - ILL-DEFINED DISORDER [None]
  - TREMOR [None]
